FAERS Safety Report 4892221-9 (Version None)
Quarter: 2006Q1

REPORT INFORMATION
  Report Type: 
  Country: None (occurrence: None)
  Receive Date: 20060125
  Receipt Date: 20060125
  Transmission Date: 20060701
  Serious: No
  Sender: FDA-Public Use
  Company Number: None

PATIENT
  Age: 41 Year
  Sex: Female
  Weight: 127 kg

DRUGS (1)
  1. FERRIC GLUCONATE [Suspect]
     Indication: IRON DEFICIENCY ANAEMIA
     Dosage: 250MG  IV
     Route: 042
     Dates: start: 20050913

REACTIONS (3)
  - INFUSION RELATED REACTION [None]
  - OEDEMA PERIPHERAL [None]
  - URTICARIA [None]
